FAERS Safety Report 4921041-1 (Version None)
Quarter: 2006Q1

REPORT INFORMATION
  Report Type: 
  Country: None (occurrence: None)
  Receive Date: 20060216
  Receipt Date: 20060208
  Transmission Date: 20060701
  Serious: Yes (Death, Hospitalization)
  Sender: FDA-Public Use
  Company Number: HQWYE725009FEB06

PATIENT
  Age: 84 Year
  Sex: Male

DRUGS (13)
  1. PANTOPRAZOLE SODIUM [Suspect]
     Indication: ABDOMINAL PAIN UPPER
     Dosage: ORAL
     Route: 048
     Dates: start: 20050322, end: 20050324
  2. KEFANDOL (CEFAMANDOLE) [Suspect]
     Indication: PROPHYLAXIS
     Dosage: ^DF^
     Dates: start: 20050322, end: 20050324
  3. MIDAZOLAM HCL [Concomitant]
  4. LOVENOX [Concomitant]
  5. ACETAMINOPHEN [Concomitant]
  6. ACETAMINOPHEN [Concomitant]
  7. ESTRACYT (ESTRAMUSTINE PHOSPHATE SODIUM) [Concomitant]
  8. LYTOS (CLODRONATE DISODIUM) [Concomitant]
  9. PREDNISONE [Concomitant]
  10. ARICEPT [Concomitant]
  11. PYOSTACINE (PRISTINAMYCIN) [Concomitant]
  12. ACETYLCYSTEINE [Concomitant]
  13. DURAGESIC-100 [Concomitant]

REACTIONS (6)
  - CEREBRAL HAEMATOMA [None]
  - COMA [None]
  - GINGIVAL BLEEDING [None]
  - HAEMATURIA [None]
  - PANCYTOPENIA [None]
  - PETECHIAE [None]
